FAERS Safety Report 13942145 (Version 2)
Quarter: 2017Q4

REPORT INFORMATION
  Report Type: Report from Study
  Country: US (occurrence: US)
  Receive Date: 20170907
  Receipt Date: 20171003
  Transmission Date: 20180320
  Serious: No
  Sender: FDA-Public Use
  Company Number: US-009507513-1708USA012326

PATIENT
  Age: 33 Year
  Sex: Female
  Weight: 93.42 kg

DRUGS (2)
  1. IMPLANON [Suspect]
     Active Substance: ETONOGESTREL
     Dosage: 1 DF, UNK
     Route: 065
     Dates: end: 20170816
  2. IMPLANON [Suspect]
     Active Substance: ETONOGESTREL
     Indication: PRODUCT USED FOR UNKNOWN INDICATION
     Dosage: 1 DF, UNK
     Route: 065
     Dates: start: 20170816

REACTIONS (6)
  - Discomfort [Unknown]
  - Medical device site discomfort [Unknown]
  - Device extrusion [Unknown]
  - Device deployment issue [Unknown]
  - No adverse event [Unknown]
  - Complication associated with device [Unknown]

NARRATIVE: CASE EVENT DATE: 201708
